FAERS Safety Report 22221613 (Version 2)
Quarter: 2023Q2

REPORT INFORMATION
  Report Type: Spontaneous
  Country: US (occurrence: None)
  Receive Date: 20230418
  Receipt Date: 20230608
  Transmission Date: 20230721
  Serious: Yes (Other)
  Sender: FDA-Public Use
  Company Number: US-ROCHE-3329035

PATIENT
  Age: 12 Year
  Sex: Female
  Weight: 72.64 kg

DRUGS (10)
  1. XOLAIR [Suspect]
     Active Substance: OMALIZUMAB
     Indication: Urticaria chronic
     Dosage: 1.5-2YEARS
     Route: 058
  2. XOLAIR [Suspect]
     Active Substance: OMALIZUMAB
  3. XOLAIR [Suspect]
     Active Substance: OMALIZUMAB
     Indication: Asthma
     Dosage: ADMINISTERED AS NEEDED, EVERY 4-7 WEEKS
     Route: 058
  4. XOLAIR [Suspect]
     Active Substance: OMALIZUMAB
  5. IRON [Suspect]
     Active Substance: IRON
     Indication: Iron deficiency
     Route: 048
  6. SYMBICORT [Concomitant]
     Active Substance: BUDESONIDE\FORMOTEROL FUMARATE DIHYDRATE
     Indication: Asthma
  7. ALBUTEROL [Concomitant]
     Active Substance: ALBUTEROL
     Indication: Asthma
     Route: 055
  8. SINGULAIR [Concomitant]
     Active Substance: MONTELUKAST SODIUM
     Indication: Asthma
     Dosage: AT NIGHT
  9. FLONASE [Concomitant]
     Active Substance: FLUTICASONE PROPIONATE
     Indication: Asthma
     Dosage: STARTED 1 MONTH AGO; TAKEN DURING ALLERGY SEASON
  10. OMEPRAZOLE [Concomitant]
     Active Substance: OMEPRAZOLE
     Dosage: DOSE INCREASED

REACTIONS (12)
  - Product dose omission issue [Unknown]
  - COVID-19 [Recovered/Resolved]
  - Urticaria [Recovered/Resolved]
  - Gastrooesophageal reflux disease [Not Recovered/Not Resolved]
  - Iron deficiency [Not Recovered/Not Resolved]
  - Duodenal ulcer [Not Recovered/Not Resolved]
  - Syringe issue [Unknown]
  - Product contamination physical [Unknown]
  - Product quality issue [Unknown]
  - Off label use [Unknown]
  - Drug intolerance [Not Recovered/Not Resolved]
  - Hypersensitivity [Not Recovered/Not Resolved]

NARRATIVE: CASE EVENT DATE: 20200201
